FAERS Safety Report 9740355 (Version 1)
Quarter: 2013Q4

REPORT INFORMATION
  Report Type: Report from Study
  Country: AR (occurrence: AR)
  Receive Date: 20131209
  Receipt Date: 20131209
  Transmission Date: 20140711
  Serious: Yes (Hospitalization)
  Sender: FDA-Public Use
  Company Number: AR-US-EMD SERONO, INC.-7256121

PATIENT
  Sex: Male

DRUGS (1)
  1. SAIZEN [Suspect]
     Indication: CONGENITAL ANAEMIA
     Dates: start: 20121113, end: 201307

REACTIONS (2)
  - Hepatic function abnormal [Recovered/Resolved]
  - Kidney perforation [Unknown]
